FAERS Safety Report 12180155 (Version 1)
Quarter: 2016Q1

REPORT INFORMATION
  Report Type: Spontaneous
  Country: US (occurrence: None)
  Receive Date: 20160314
  Receipt Date: 20160314
  Transmission Date: 20160526
  Serious: Yes (Life-Threatening, Other)
  Sender: FDA-Public Use
  Company Number: None

PATIENT
  Age: 65 Year
  Sex: Female
  Weight: 90.27 kg

DRUGS (6)
  1. ZIAC HCTZ [Concomitant]
  2. ASPIRIN. [Concomitant]
     Active Substance: ASPIRIN
  3. ALLEGRA [Concomitant]
     Active Substance: FEXOFENADINE HYDROCHLORIDE
  4. NEURONTIN [Concomitant]
     Active Substance: GABAPENTIN
  5. ACIPHEX [Concomitant]
     Active Substance: RABEPRAZOLE SODIUM
  6. BISOPROLOL/HCTZ TABS 5/6.25 DF UNICHEM [Suspect]
     Active Substance: BISOPROLOL FUMARATE\HYDROCHLOROTHIAZIDE
     Indication: HYPERTENSION
     Dosage: ONE TABLET, ONCE DAILY, TAKEN BY MOUTH; GENERICS AND ORIGINALS

REACTIONS (7)
  - Heart rate abnormal [None]
  - Feeling abnormal [None]
  - Joint swelling [None]
  - Blood pressure fluctuation [None]
  - Drug ineffective [None]
  - Product substitution issue [None]
  - Peripheral swelling [None]
